FAERS Safety Report 9126116 (Version 6)
Quarter: 2013Q4

REPORT INFORMATION
  Report Type: Spontaneous
  Country: GB (occurrence: GB)
  Receive Date: 20130121
  Receipt Date: 20131009
  Transmission Date: 20140711
  Serious: Yes (Death, Other)
  Sender: FDA-Public Use
  Company Number: GB-INCYTE CORPORATION-2013IN000079

PATIENT
  Age: 70 Year
  Sex: Female
  Weight: 60 kg

DRUGS (2)
  1. JAKAVI [Suspect]
     Indication: HAEMOGLOBIN DECREASED
     Dosage: 10 MG, DAILY
     Route: 048
     Dates: start: 20121120, end: 20121218
  2. JAKAVI [Suspect]
     Indication: PLATELET COUNT DECREASED
     Dosage: 5 MG, DAILY
     Route: 048
     Dates: start: 20121219, end: 20130108

REACTIONS (14)
  - Leukoencephalopathy [Fatal]
  - Hemiparesis [Fatal]
  - Dysphagia [Fatal]
  - Cerebrovascular accident [Fatal]
  - Metastases to central nervous system [Unknown]
  - Blast cells [Unknown]
  - Pleural effusion [Unknown]
  - Coma [None]
  - Splenomegaly [Unknown]
  - Balance disorder [None]
  - Speech disorder [None]
  - White blood cell count decreased [Unknown]
  - Platelet count decreased [Recovering/Resolving]
  - Haemoglobin decreased [Recovering/Resolving]
